FAERS Safety Report 7366595-3 (Version None)
Quarter: 2011Q1

REPORT INFORMATION
  Report Type: 
  Country: None (occurrence: None)
  Receive Date: 20110309
  Receipt Date: 20110222
  Transmission Date: 20110831
  Serious: Yes (Other)
  Sender: FDA-Public Use
  Company Number: AUR-APL-2011-00719

PATIENT
  Age: 68 Year
  Sex: Male

DRUGS (6)
  1. MORPHINE SULFATE [Concomitant]
  2. CLEXANE [Concomitant]
  3. LENALIDOMIDE [Suspect]
     Indication: MYELOMA RECURRENCE
     Dosage: 25MG-QD-ORAL
     Route: 048
     Dates: start: 20091001
  4. GABAPENTIN [Suspect]
     Indication: NEURALGIA
     Dosage: 600MG-TID-ORAL
     Route: 048
     Dates: start: 20070701, end: 20110210
  5. DEXAMETHASONE [Concomitant]
  6. FINASTERIDE [Concomitant]

REACTIONS (4)
  - AUTOIMMUNE THROMBOCYTOPENIA [None]
  - NO THERAPEUTIC RESPONSE [None]
  - HAEMORRHAGE [None]
  - MYELOMA RECURRENCE [None]
